FAERS Safety Report 6024850-3 (Version None)
Quarter: 2008Q4

REPORT INFORMATION
  Report Type: 
  Country: None (occurrence: None)
  Receive Date: 20081231
  Receipt Date: 20081222
  Transmission Date: 20090506
  Serious: Yes (Hospitalization, Other)
  Sender: FDA-Public Use
  Company Number: GB-TYCO HEALTHCARE/MALLINCKRODT-T200802156

PATIENT

DRUGS (1)
  1. METHADOSE [Suspect]
     Indication: DRUG ABUSE
     Dosage: 120 MG, SINGLE

REACTIONS (4)
  - LOSS OF CONSCIOUSNESS [None]
  - NARCOTIC INTOXICATION [None]
  - NERVE COMPRESSION [None]
  - RHABDOMYOLYSIS [None]
